FAERS Safety Report 9681307 (Version 1)
Quarter: 2013Q4

REPORT INFORMATION
  Report Type: Report from Study
  Country: JP (occurrence: JP)
  Receive Date: 20131111
  Receipt Date: 20131111
  Transmission Date: 20140711
  Serious: Yes (Other)
  Sender: FDA-Public Use
  Company Number: JP-GILEAD-2013-0087339

PATIENT
  Age: 71 Year
  Sex: Female
  Weight: 50 kg

DRUGS (14)
  1. AMBRISENTAN [Suspect]
     Indication: PULMONARY ARTERIAL HYPERTENSION
     Dosage: 5MG PER DAY
     Route: 048
     Dates: start: 20120206, end: 20120221
  2. AMBRISENTAN [Suspect]
     Dosage: 7.5MG PER DAY
     Route: 048
     Dates: start: 20120222
  3. BERAPROST SODIUM [Concomitant]
     Indication: PULMONARY ARTERIAL HYPERTENSION
     Route: 048
     Dates: start: 20120612
  4. TAKEPRON [Concomitant]
     Route: 048
     Dates: end: 20120905
  5. PREDONINE                          /00016201/ [Concomitant]
     Route: 048
  6. ONEALFA [Concomitant]
     Route: 048
  7. PROGRAF [Concomitant]
     Route: 048
  8. UNISIA [Concomitant]
     Route: 048
  9. GASMOTIN [Concomitant]
     Route: 048
  10. BONALON [Concomitant]
     Route: 048
  11. BAKTAR [Concomitant]
     Indication: ANTIFUNGAL PROPHYLAXIS
     Route: 048
  12. CODEINE PHOSPHATE [Concomitant]
     Route: 048
  13. MAGNESIUM OXIDE [Concomitant]
     Indication: CONSTIPATION PROPHYLAXIS
     Route: 048
  14. ITRIZOLE [Concomitant]
     Route: 048

REACTIONS (3)
  - Supraventricular tachycardia [Not Recovered/Not Resolved]
  - Anaemia [Recovered/Resolved]
  - Oedema [Recovering/Resolving]
